FAERS Safety Report 5280466-8 (Version None)
Quarter: 2007Q1

REPORT INFORMATION
  Report Type: 
  Country: None (occurrence: None)
  Receive Date: 20061229
  Receipt Date: 20060920
  Transmission Date: 20070707
  Serious: Yes (Other)
  Sender: FDA-Public Use
  Company Number: 2006UW18855

PATIENT
  Age: 53 Year
  Sex: Female

DRUGS (6)
  1. CRESTOR [Suspect]
     Dosage: 5 MG PO
     Route: 048
  2. CRESTOR [Suspect]
     Dosage: 10 M G PO
     Route: 048
  3. PROGRAF [Concomitant]
  4. LASIX [Concomitant]
  5. AVAPRO [Concomitant]
  6. INSULIN [Concomitant]

REACTIONS (2)
  - DRUG INEFFECTIVE [None]
  - LIPIDS ABNORMAL [None]
